FAERS Safety Report 17153234 (Version 2)
Quarter: 2019Q4

REPORT INFORMATION
  Report Type: Report from Study
  Country: US (occurrence: US)
  Receive Date: 20191213
  Receipt Date: 20191230
  Transmission Date: 20200122
  Serious: Yes (Hospitalization, Other)
  Sender: FDA-Public Use
  Company Number: US-GLAXOSMITHKLINE-US2019TSO224440

PATIENT
  Age: 63 Year
  Sex: Female
  Weight: 60.5 kg

DRUGS (23)
  1. COENZYME Q10 [Concomitant]
     Active Substance: UBIDECARENONE
  2. OLANZAPINE. [Concomitant]
     Active Substance: OLANZAPINE
  3. MAGNESIUM LACTATE [Concomitant]
     Active Substance: MAGNESIUM LACTATE
  4. CARBOPLATIN. [Suspect]
     Active Substance: CARBOPLATIN
     Dosage: 450 AUC, SINGLE
     Route: 042
     Dates: start: 20190725, end: 20190725
  5. LANSOPRAZOL [Concomitant]
     Active Substance: LANSOPRAZOLE
  6. LEXAPRO [Concomitant]
     Active Substance: ESCITALOPRAM OXALATE
     Indication: PRODUCT USED FOR UNKNOWN INDICATION
  7. VITAMIN C [Concomitant]
     Active Substance: ASCORBIC ACID
  8. BEE POLLEN [Concomitant]
     Active Substance: BEE POLLEN
  9. PACLITAXEL. [Suspect]
     Active Substance: PACLITAXEL
     Indication: OVARIAN CANCER
     Dosage: 276 MG, SINGLE
     Route: 042
     Dates: start: 20190411, end: 20190411
  10. B6 TABLET [Concomitant]
  11. EMLA [Concomitant]
     Active Substance: LIDOCAINE\PRILOCAINE
  12. BEVACIZUMAB. [Suspect]
     Active Substance: BEVACIZUMAB
     Indication: OVARIAN CANCER
     Route: 042
  13. ASA [Concomitant]
     Active Substance: ASPIRIN
     Dosage: 81 MG
  14. NIRAPARIB [Suspect]
     Active Substance: NIRAPARIB
     Indication: OVARIAN CANCER
     Dosage: 200 MG
     Route: 048
     Dates: start: 20190815, end: 20191106
  15. PACLITAXEL. [Suspect]
     Active Substance: PACLITAXEL
     Dosage: 270 MG, SINGLE
     Route: 042
     Dates: start: 20190725, end: 20190725
  16. ZOFRAN [Concomitant]
     Active Substance: ONDANSETRON HYDROCHLORIDE
  17. DECADRON [Concomitant]
     Active Substance: DEXAMETHASONE
     Dosage: PRE-CHEMO
  18. DOSTARLIMAB [Suspect]
     Active Substance: DOSTARLIMAB
     Dosage: 1000 MG, SINGLE
     Route: 042
     Dates: start: 20191107, end: 20191107
  19. CARBOPLATIN. [Suspect]
     Active Substance: CARBOPLATIN
     Indication: OVARIAN CANCER
     Dosage: 5 AUC, SINGLE
     Route: 042
     Dates: start: 20190411, end: 20190411
  20. DOSTARLIMAB [Suspect]
     Active Substance: DOSTARLIMAB
     Indication: OVARIAN CANCER
     Dosage: 500 MG, SINGLE
     Route: 042
     Dates: start: 20190501, end: 20190501
  21. LOSARTAN/HIDROCLOROTIAZIDA [Concomitant]
  22. PRAVASTATIN. [Concomitant]
     Active Substance: PRAVASTATIN
  23. GLUCOSAMINE + CHONDROITIN [Concomitant]
     Active Substance: CHONDROITIN SULFATE (BOVINE)\GLUCOSAMINE HYDROCHLORIDE

REACTIONS (1)
  - Urinary retention [Recovering/Resolving]

NARRATIVE: CASE EVENT DATE: 20191207
